FAERS Safety Report 6011375-4 (Version None)
Quarter: 2008Q4

REPORT INFORMATION
  Report Type: 
  Country: None (occurrence: None)
  Receive Date: 20081218
  Receipt Date: 20081212
  Transmission Date: 20090506
  Serious: Yes (Hospitalization)
  Sender: FDA-Public Use
  Company Number: US-GENENTECH-272175

PATIENT
  Sex: Female
  Weight: 81 kg

DRUGS (9)
  1. BEVACIZUMAB [Suspect]
     Indication: BREAST CANCER METASTATIC
     Dosage: 811 MG, Q2W
     Route: 042
     Dates: start: 20080620
  2. TAXOL [Concomitant]
     Indication: BREAST CANCER METASTATIC
     Dosage: 90 MG/M2, UNK
     Dates: start: 20080620
  3. ACTONEL [Concomitant]
     Indication: DRUG USE FOR UNKNOWN INDICATION
     Dosage: 35 MG, 1/WEEK
     Dates: start: 20070101
  4. CRESTOR [Concomitant]
     Indication: HYPERCHOLESTEROLAEMIA
     Dosage: 10 MG, UNK
     Route: 048
     Dates: start: 20070101
  5. ACCURETIC [Concomitant]
     Indication: HYPERTENSION
     Dosage: 20 MG, UNK
     Route: 048
     Dates: start: 20070101
  6. ATIVAN [Concomitant]
     Indication: DRUG USE FOR UNKNOWN INDICATION
     Dosage: 1 MG, BID
     Route: 048
     Dates: start: 20000101
  7. TYLENOL EXTRA FORTE [Concomitant]
     Indication: DRUG USE FOR UNKNOWN INDICATION
     Dosage: 650 MG, PRN
     Dates: start: 20080621
  8. CODEINE SUL TAB [Concomitant]
     Indication: DRUG USE FOR UNKNOWN INDICATION
     Dosage: 30 MG, PRN
     Dates: start: 20080805
  9. FLAGYL [Concomitant]
     Indication: DRUG USE FOR UNKNOWN INDICATION
     Dosage: UNK
     Dates: start: 20081122, end: 20081126

REACTIONS (1)
  - PROCTITIS [None]
